FAERS Safety Report 12550102 (Version 2)
Quarter: 2016Q3

REPORT INFORMATION
  Report Type: Spontaneous
  Country: US (occurrence: US)
  Receive Date: 20160712
  Receipt Date: 20160804
  Transmission Date: 20161109
  Serious: No
  Sender: FDA-Public Use
  Company Number: US-GLAXOSMITHKLINE-US2016094147

PATIENT
  Age: 80 Year
  Sex: Female

DRUGS (10)
  1. ATROVENT [Suspect]
     Active Substance: IPRATROPIUM BROMIDE
     Indication: RHINORRHOEA
     Dosage: UNK
     Route: 045
     Dates: start: 20160623
  2. CRESTOR [Concomitant]
     Active Substance: ROSUVASTATIN CALCIUM
  3. DELSYM [Suspect]
     Active Substance: DEXTROMETHORPHAN
     Indication: RHINORRHOEA
  4. ANORO ELLIPTA [Suspect]
     Active Substance: UMECLIDINIUM BROMIDE\VILANTEROL TRIFENATATE
     Indication: BRONCHIECTASIS
  5. ANORO ELLIPTA [Suspect]
     Active Substance: UMECLIDINIUM BROMIDE\VILANTEROL TRIFENATATE
     Indication: MYCOBACTERIUM AVIUM COMPLEX INFECTION
     Dosage: 1 PUFF(S), QD
     Route: 055
     Dates: start: 201602
  6. DELSYM [Suspect]
     Active Substance: DEXTROMETHORPHAN
     Indication: NASAL CONGESTION
  7. KLONOPIN [Concomitant]
     Active Substance: CLONAZEPAM
  8. MUCINEX [Suspect]
     Active Substance: GUAIFENESIN
     Indication: PRODUCT USED FOR UNKNOWN INDICATION
     Dosage: UNK
     Dates: start: 201606
  9. DELSYM [Suspect]
     Active Substance: DEXTROMETHORPHAN
     Indication: COUGH
     Dosage: UNK
     Dates: start: 201606
  10. FLAXSEED [Concomitant]
     Active Substance: FLAX SEED

REACTIONS (3)
  - Drug interaction [Not Recovered/Not Resolved]
  - Rhinorrhoea [Unknown]
  - Constipation [Not Recovered/Not Resolved]

NARRATIVE: CASE EVENT DATE: 201606
